FAERS Safety Report 21129252 (Version 2)
Quarter: 2022Q3

REPORT INFORMATION
  Report Type: Spontaneous
  Country: GB (occurrence: GB)
  Receive Date: 20220725
  Receipt Date: 20220729
  Transmission Date: 20221027
  Serious: Yes (Death, Other)
  Sender: FDA-Public Use
  Company Number: GB-GILEAD-2022-0590960

PATIENT
  Sex: Male

DRUGS (1)
  1. YESCARTA [Suspect]
     Active Substance: AXICABTAGENE CILOLEUCEL
     Indication: Product used for unknown indication
     Dosage: UNK
     Route: 065
     Dates: start: 20220217

REACTIONS (2)
  - Death [Fatal]
  - Immune effector cell-associated neurotoxicity syndrome [Unknown]

NARRATIVE: CASE EVENT DATE: 20220419
